FAERS Safety Report 15673069 (Version 1)
Quarter: 2018Q4

REPORT INFORMATION
  Report Type: Report from Study
  Country: KR (occurrence: KR)
  Receive Date: 20181129
  Receipt Date: 20181129
  Transmission Date: 20190205
  Serious: Yes (Hospitalization)
  Sender: FDA-Public Use
  Company Number: KR-BAUSCH-BL-2018-015069

PATIENT
  Age: 27 Year
  Sex: Male
  Weight: 67 kg

DRUGS (4)
  1. KHK4827 [Suspect]
     Active Substance: BRODALUMAB
     Indication: AXIAL SPONDYLOARTHRITIS
     Dosage: 1X/2WEEKS
     Route: 058
     Dates: start: 20180319, end: 20180430
  2. SALAZOPYRINE [Concomitant]
     Active Substance: SULFASALAZINE
     Indication: ANKYLOSING SPONDYLITIS
     Dosage: ORAL DRUG UNSPECIFIED FORM
     Route: 048
     Dates: start: 20170824, end: 20180519
  3. ACECLOFENAC [Concomitant]
     Active Substance: ACECLOFENAC
     Indication: ANKYLOSING SPONDYLITIS
     Dosage: ORAL DRUG UNSPECIFIED FORM
     Route: 048
     Dates: start: 20170824, end: 20180519
  4. RANITIDINE. [Concomitant]
     Active Substance: RANITIDINE
     Indication: PROPHYLAXIS
     Dosage: ORAL DRUG UNSPECIFIED FORM
     Route: 048
     Dates: start: 20170824, end: 20180519

REACTIONS (1)
  - Cellulitis [Recovered/Resolved]

NARRATIVE: CASE EVENT DATE: 20180315
